FAERS Safety Report 20465772 (Version 16)
Quarter: 2023Q2

REPORT INFORMATION
  Report Type: Spontaneous
  Country: CA (occurrence: CA)
  Receive Date: 20220212
  Receipt Date: 20230528
  Transmission Date: 20230722
  Serious: Yes (Other)
  Sender: FDA-Public Use
  Company Number: CA-CELLTRION INC.-2021CA018902

PATIENT

DRUGS (25)
  1. INFLECTRA [Suspect]
     Active Substance: INFLIXIMAB-DYYB
     Indication: Ankylosing spondylitis
     Dosage: 5MG/KG, INDUCTION DOSES AT WEEK 0, 2 AND 6, THEN EVERY 6 WEEKS
     Route: 042
     Dates: start: 20210630, end: 20220901
  2. INFLECTRA [Suspect]
     Active Substance: INFLIXIMAB-DYYB
     Dosage: 5MG/KG,INDUCTION DOSES AT WEEK 0, 2 AND 6, THEN EVERY 6 WEEKS
     Route: 042
     Dates: start: 20210811
  3. INFLECTRA [Suspect]
     Active Substance: INFLIXIMAB-DYYB
     Dosage: 5MG/KG,INDUCTION DOSES AT WEEK 0, 2 AND 6, THEN EVERY 6 WEEKS
     Route: 042
     Dates: start: 20211001
  4. INFLECTRA [Suspect]
     Active Substance: INFLIXIMAB-DYYB
     Dosage: 5MG/KG,INDUCTION DOSES AT WEEK 0, 2 AND 6, THEN EVERY 6 WEEKS
     Route: 042
     Dates: start: 20211110
  5. INFLECTRA [Suspect]
     Active Substance: INFLIXIMAB-DYYB
     Dosage: 5MG/KG,INDUCTION DOSES AT WEEK 0, 2 AND 6, THEN EVERY 6 WEEKS
     Route: 042
     Dates: start: 20220114
  6. INFLECTRA [Suspect]
     Active Substance: INFLIXIMAB-DYYB
     Dosage: 5 MG/KG Q 6 WEEKS
     Route: 042
     Dates: start: 20220421
  7. INFLECTRA [Suspect]
     Active Substance: INFLIXIMAB-DYYB
     Dosage: 5 MG/KG, RECEIVED 12 WEEKS AND 6 DAYS AFTER LAST INFUSION
     Route: 042
     Dates: start: 20220721
  8. INFLECTRA [Suspect]
     Active Substance: INFLIXIMAB-DYYB
     Dosage: 5 MG/KG, RECEIVED 12 WEEKS AND 6 DAYS AFTER LAST INFUSION
     Route: 042
     Dates: start: 20220721
  9. INFLECTRA [Suspect]
     Active Substance: INFLIXIMAB-DYYB
     Dosage: 5 MG/KG, RECEIVED 12 WEEKS AND 6 DAYS AFTER LAST INFUSION
     Route: 042
     Dates: start: 20220901, end: 20220901
  10. INFLECTRA [Suspect]
     Active Substance: INFLIXIMAB-DYYB
     Dosage: 5 MG/KG, EVERY 5 WEEKS
     Route: 042
     Dates: start: 20221013
  11. INFLECTRA [Suspect]
     Active Substance: INFLIXIMAB-DYYB
     Dosage: 550 MG EVERY 5 WEEKS
     Route: 042
     Dates: start: 20221128
  12. INFLECTRA [Suspect]
     Active Substance: INFLIXIMAB-DYYB
     Dosage: 5 MG/KG, EVERY 5 WEEKS
     Route: 042
     Dates: start: 20230105
  13. INFLECTRA [Suspect]
     Active Substance: INFLIXIMAB-DYYB
     Dosage: 5 MG/KG, EVERY 5 WEEKS
     Route: 042
     Dates: start: 20230105
  14. INFLECTRA [Suspect]
     Active Substance: INFLIXIMAB-DYYB
     Dosage: 550 MG EVERY 6 WEEKS
     Route: 042
     Dates: start: 20230216
  15. INFLECTRA [Suspect]
     Active Substance: INFLIXIMAB-DYYB
     Dosage: 550MG EVERY 6 WEEKS
     Route: 042
     Dates: start: 20230216
  16. INFLECTRA [Suspect]
     Active Substance: INFLIXIMAB-DYYB
     Dosage: UNK
     Route: 042
     Dates: start: 20230406
  17. CELEBREX [Concomitant]
     Active Substance: CELECOXIB
     Dosage: 1 DF, [NO DOSAGE INFORMATION AVAILABLE]
  18. CIMZIA [Concomitant]
     Active Substance: CERTOLIZUMAB PEGOL
     Dosage: 1 DF
  19. CIMZIA [Concomitant]
     Active Substance: CERTOLIZUMAB PEGOL
     Dosage: 50 MG
  20. FLUOXETINE [Concomitant]
     Active Substance: FLUOXETINE HYDROCHLORIDE
     Dosage: 50 MG, DAILY, (50 MG DIE)
  21. PANTOPRAZOLE [Concomitant]
     Active Substance: PANTOPRAZOLE
     Dosage: 1 DF
  22. SEROQUEL [Concomitant]
     Active Substance: QUETIAPINE FUMARATE
     Dosage: UNK, AS NEEDED / [PRN]
  23. SEROQUEL [Concomitant]
     Active Substance: QUETIAPINE FUMARATE
     Dosage: 1 DF
  24. WELLBUTRIN [Concomitant]
     Active Substance: BUPROPION HYDROCHLORIDE
     Dosage: 1 DF
  25. ACETAMINOPHEN [Concomitant]
     Active Substance: ACETAMINOPHEN
     Dosage: 650 MG

REACTIONS (16)
  - Pneumonia [Unknown]
  - Vasectomy [Recovered/Resolved]
  - Epididymitis [Not Recovered/Not Resolved]
  - Weight decreased [Not Recovered/Not Resolved]
  - Presyncope [Recovering/Resolving]
  - Ear infection [Unknown]
  - Arthralgia [Not Recovered/Not Resolved]
  - Back pain [Not Recovered/Not Resolved]
  - Myalgia [Not Recovered/Not Resolved]
  - Abdominal pain [Not Recovered/Not Resolved]
  - Diarrhoea [Not Recovered/Not Resolved]
  - Nausea [Unknown]
  - Headache [Recovering/Resolving]
  - Blood pressure increased [Recovered/Resolved]
  - Off label use [Unknown]
  - Inappropriate schedule of product administration [Unknown]

NARRATIVE: CASE EVENT DATE: 20210101
